FAERS Safety Report 6161719-8 (Version None)
Quarter: 2009Q2

REPORT INFORMATION
  Report Type: 
  Country: None (occurrence: None)
  Receive Date: 20090417
  Receipt Date: 20090417
  Transmission Date: 20091009
  Serious: No
  Sender: FDA-Public Use
  Company Number: None

PATIENT
  Age: 47 Year
  Sex: Female
  Weight: 63.5036 kg

DRUGS (3)
  1. LAMICTAL [Suspect]
     Indication: DEPRESSION
     Dosage: 12.5 MGS DAILY PO
     Route: 048
     Dates: start: 20080820, end: 20080826
  2. PAXIL [Concomitant]
  3. SEROQUEL [Concomitant]

REACTIONS (17)
  - ABDOMINAL PAIN UPPER [None]
  - AGITATION [None]
  - AGORAPHOBIA [None]
  - CRYING [None]
  - DEPRESSION [None]
  - DIZZINESS [None]
  - DRUG WITHDRAWAL SYNDROME [None]
  - HEADACHE [None]
  - HYPERACUSIS [None]
  - HYPERHIDROSIS [None]
  - IMPAIRED DRIVING ABILITY [None]
  - IMPAIRED WORK ABILITY [None]
  - INSOMNIA [None]
  - MALAISE [None]
  - NAUSEA [None]
  - PANIC ATTACK [None]
  - PANIC REACTION [None]
